FAERS Safety Report 25918597 (Version 1)
Quarter: 2025Q4

REPORT INFORMATION
  Report Type: Spontaneous
  Country: GB (occurrence: GB)
  Receive Date: 20251014
  Receipt Date: 20251014
  Transmission Date: 20260118
  Serious: Yes (Other)
  Sender: MYLAN
  Company Number: GB-MHRA-TPP943559C9558410YC1759742349137

PATIENT
  Age: 71 Year
  Sex: Male
  Weight: 82 kg

DRUGS (44)
  1. ATORVASTATIN [Suspect]
     Active Substance: ATORVASTATIN
     Indication: Ill-defined disorder
     Dosage: 20 MILLIGRAM, QD
     Dates: start: 20250317, end: 20251006
  2. ATORVASTATIN [Suspect]
     Active Substance: ATORVASTATIN
     Dosage: 20 MILLIGRAM, QD
     Route: 065
     Dates: start: 20250317, end: 20251006
  3. ATORVASTATIN [Suspect]
     Active Substance: ATORVASTATIN
     Dosage: 20 MILLIGRAM, QD
     Route: 065
     Dates: start: 20250317, end: 20251006
  4. ATORVASTATIN [Suspect]
     Active Substance: ATORVASTATIN
     Dosage: 20 MILLIGRAM, QD
     Dates: start: 20250317, end: 20251006
  5. SILDENAFIL [Concomitant]
     Active Substance: SILDENAFIL
     Indication: Ill-defined disorder
     Dosage: 1 DOSAGE FORM (TAKE ONE TABLET, ONE HOUR BEFORE DESIRED EFFECT.)
  6. SILDENAFIL [Concomitant]
     Active Substance: SILDENAFIL
     Dosage: 1 DOSAGE FORM (TAKE ONE TABLET, ONE HOUR BEFORE DESIRED EFFECT.)
     Route: 065
  7. SILDENAFIL [Concomitant]
     Active Substance: SILDENAFIL
     Dosage: 1 DOSAGE FORM (TAKE ONE TABLET, ONE HOUR BEFORE DESIRED EFFECT.)
     Route: 065
  8. SILDENAFIL [Concomitant]
     Active Substance: SILDENAFIL
     Dosage: 1 DOSAGE FORM (TAKE ONE TABLET, ONE HOUR BEFORE DESIRED EFFECT.)
  9. EZETIMIBE [Concomitant]
     Active Substance: EZETIMIBE
     Indication: Ill-defined disorder
     Dosage: 1 DOSAGE FORM, QD (TAKE ONE TABLET ONCE A DAY TO LOWER CHOLESTEROL)
     Dates: start: 20251006
  10. EZETIMIBE [Concomitant]
     Active Substance: EZETIMIBE
     Dosage: 1 DOSAGE FORM, QD (TAKE ONE TABLET ONCE A DAY TO LOWER CHOLESTEROL)
     Route: 065
     Dates: start: 20251006
  11. EZETIMIBE [Concomitant]
     Active Substance: EZETIMIBE
     Dosage: 1 DOSAGE FORM, QD (TAKE ONE TABLET ONCE A DAY TO LOWER CHOLESTEROL)
     Route: 065
     Dates: start: 20251006
  12. EZETIMIBE [Concomitant]
     Active Substance: EZETIMIBE
     Dosage: 1 DOSAGE FORM, QD (TAKE ONE TABLET ONCE A DAY TO LOWER CHOLESTEROL)
     Dates: start: 20251006
  13. BRIMONIDINE TARTRATE [Concomitant]
     Active Substance: BRIMONIDINE TARTRATE
     Indication: Ill-defined disorder
     Dosage: 1 GTT DROPS, BID  (ONE DROPE TICE DAILY)
     Dates: start: 20250317
  14. BRIMONIDINE TARTRATE [Concomitant]
     Active Substance: BRIMONIDINE TARTRATE
     Dosage: 1 GTT DROPS, BID  (ONE DROPE TICE DAILY)
     Route: 065
     Dates: start: 20250317
  15. BRIMONIDINE TARTRATE [Concomitant]
     Active Substance: BRIMONIDINE TARTRATE
     Dosage: 1 GTT DROPS, BID  (ONE DROPE TICE DAILY)
     Route: 065
     Dates: start: 20250317
  16. BRIMONIDINE TARTRATE [Concomitant]
     Active Substance: BRIMONIDINE TARTRATE
     Dosage: 1 GTT DROPS, BID  (ONE DROPE TICE DAILY)
     Dates: start: 20250317
  17. BRINZOLAMIDE [Concomitant]
     Active Substance: BRINZOLAMIDE
     Indication: Ill-defined disorder
     Dosage: 1 GTT DROPS, BID  (ONE DROP TWICE DAILY)
     Dates: start: 20250317
  18. BRINZOLAMIDE [Concomitant]
     Active Substance: BRINZOLAMIDE
     Dosage: 1 GTT DROPS, BID  (ONE DROP TWICE DAILY)
     Route: 065
     Dates: start: 20250317
  19. BRINZOLAMIDE [Concomitant]
     Active Substance: BRINZOLAMIDE
     Dosage: 1 GTT DROPS, BID  (ONE DROP TWICE DAILY)
     Route: 065
     Dates: start: 20250317
  20. BRINZOLAMIDE [Concomitant]
     Active Substance: BRINZOLAMIDE
     Dosage: 1 GTT DROPS, BID  (ONE DROP TWICE DAILY)
     Dates: start: 20250317
  21. DAPAGLIFLOZIN [Concomitant]
     Active Substance: DAPAGLIFLOZIN
     Indication: Ill-defined disorder
     Dosage: 1 DOSAGE FORM, QD (TAKE ONE DAILY)
     Dates: start: 20250317
  22. DAPAGLIFLOZIN [Concomitant]
     Active Substance: DAPAGLIFLOZIN
     Dosage: 1 DOSAGE FORM, QD (TAKE ONE DAILY)
     Route: 065
     Dates: start: 20250317
  23. DAPAGLIFLOZIN [Concomitant]
     Active Substance: DAPAGLIFLOZIN
     Dosage: 1 DOSAGE FORM, QD (TAKE ONE DAILY)
     Route: 065
     Dates: start: 20250317
  24. DAPAGLIFLOZIN [Concomitant]
     Active Substance: DAPAGLIFLOZIN
     Dosage: 1 DOSAGE FORM, QD (TAKE ONE DAILY)
     Dates: start: 20250317
  25. LANSOPRAZOLE [Concomitant]
     Active Substance: LANSOPRAZOLE
     Indication: Ill-defined disorder
     Dosage: 1 DOSAGE FORM, AM (ONE CAPSULE DAILY HALF AN HR BEFORE BREAKFAST)
     Dates: start: 20250317
  26. LANSOPRAZOLE [Concomitant]
     Active Substance: LANSOPRAZOLE
     Dosage: 1 DOSAGE FORM, AM (ONE CAPSULE DAILY HALF AN HR BEFORE BREAKFAST)
     Route: 065
     Dates: start: 20250317
  27. LANSOPRAZOLE [Concomitant]
     Active Substance: LANSOPRAZOLE
     Dosage: 1 DOSAGE FORM, AM (ONE CAPSULE DAILY HALF AN HR BEFORE BREAKFAST)
     Route: 065
     Dates: start: 20250317
  28. LANSOPRAZOLE [Concomitant]
     Active Substance: LANSOPRAZOLE
     Dosage: 1 DOSAGE FORM, AM (ONE CAPSULE DAILY HALF AN HR BEFORE BREAKFAST)
     Dates: start: 20250317
  29. TIMOLOL [Concomitant]
     Active Substance: TIMOLOL
     Indication: Ill-defined disorder
     Dosage: 1 GTT DROPS, QD (ONE DROP ONCE DAILY)
     Dates: start: 20250317
  30. TIMOLOL [Concomitant]
     Active Substance: TIMOLOL
     Dosage: 1 GTT DROPS, QD (ONE DROP ONCE DAILY)
     Route: 065
     Dates: start: 20250317
  31. TIMOLOL [Concomitant]
     Active Substance: TIMOLOL
     Dosage: 1 GTT DROPS, QD (ONE DROP ONCE DAILY)
     Route: 065
     Dates: start: 20250317
  32. TIMOLOL [Concomitant]
     Active Substance: TIMOLOL
     Dosage: 1 GTT DROPS, QD (ONE DROP ONCE DAILY)
     Dates: start: 20250317
  33. RAMIPRIL [Concomitant]
     Active Substance: RAMIPRIL
     Indication: Ill-defined disorder
     Dosage: 1 DOSAGE FORM, QD (TAKE ONE CAPSULE ONCE DAILY)
     Dates: start: 20250317
  34. RAMIPRIL [Concomitant]
     Active Substance: RAMIPRIL
     Dosage: 1 DOSAGE FORM, QD (TAKE ONE CAPSULE ONCE DAILY)
     Route: 065
     Dates: start: 20250317
  35. RAMIPRIL [Concomitant]
     Active Substance: RAMIPRIL
     Dosage: 1 DOSAGE FORM, QD (TAKE ONE CAPSULE ONCE DAILY)
     Route: 065
     Dates: start: 20250317
  36. RAMIPRIL [Concomitant]
     Active Substance: RAMIPRIL
     Dosage: 1 DOSAGE FORM, QD (TAKE ONE CAPSULE ONCE DAILY)
     Dates: start: 20250317
  37. RYBELSUS [Concomitant]
     Active Substance: SEMAGLUTIDE
     Indication: Ill-defined disorder
     Dosage: 1 DOSAGE FORM, QD (TAKE ONE DAILY WITH SMALL SIP OF WATER, 30MINS ...)
     Dates: start: 20250317
  38. RYBELSUS [Concomitant]
     Active Substance: SEMAGLUTIDE
     Dosage: 1 DOSAGE FORM, QD (TAKE ONE DAILY WITH SMALL SIP OF WATER, 30MINS ...)
     Route: 048
     Dates: start: 20250317
  39. RYBELSUS [Concomitant]
     Active Substance: SEMAGLUTIDE
     Dosage: 1 DOSAGE FORM, QD (TAKE ONE DAILY WITH SMALL SIP OF WATER, 30MINS ...)
     Route: 048
     Dates: start: 20250317
  40. RYBELSUS [Concomitant]
     Active Substance: SEMAGLUTIDE
     Dosage: 1 DOSAGE FORM, QD (TAKE ONE DAILY WITH SMALL SIP OF WATER, 30MINS ...)
     Dates: start: 20250317
  41. TADALAFIL [Concomitant]
     Active Substance: TADALAFIL
     Indication: Ill-defined disorder
     Dosage: 1 DOSAGE FORM (TAKE 1 TABLET AS DIRECTED)
     Dates: start: 20250317, end: 20250714
  42. TADALAFIL [Concomitant]
     Active Substance: TADALAFIL
     Dosage: 1 DOSAGE FORM (TAKE 1 TABLET AS DIRECTED)
     Route: 065
     Dates: start: 20250317, end: 20250714
  43. TADALAFIL [Concomitant]
     Active Substance: TADALAFIL
     Dosage: 1 DOSAGE FORM (TAKE 1 TABLET AS DIRECTED)
     Route: 065
     Dates: start: 20250317, end: 20250714
  44. TADALAFIL [Concomitant]
     Active Substance: TADALAFIL
     Dosage: 1 DOSAGE FORM (TAKE 1 TABLET AS DIRECTED)
     Dates: start: 20250317, end: 20250714

REACTIONS (1)
  - Erectile dysfunction [Recovered/Resolved]

NARRATIVE: CASE EVENT DATE: 20251006
